FAERS Safety Report 9525985 (Version 2)
Quarter: 2013Q3

REPORT INFORMATION
  Report Type: Spontaneous
  Country: NL (occurrence: NL)
  Receive Date: 20130916
  Receipt Date: 20130916
  Transmission Date: 20140515
  Serious: Yes (Death)
  Sender: FDA-Public Use
  Company Number: NL-SANOFI-AVENTIS-2013SA083467

PATIENT
  Age: 59 Year
  Sex: Male

DRUGS (24)
  1. RIFADIN [Suspect]
     Indication: INFECTION
     Route: 042
     Dates: start: 20130812, end: 20130821
  2. MAGNESIUM HYDROXIDE [Concomitant]
     Dosage: DOSE: 3 DD 2?FORM: CHEWABLE TABLET
     Route: 048
     Dates: start: 20130813
  3. PANTOZOL [Concomitant]
     Route: 042
     Dates: start: 20130812
  4. METOCLOPRAMIDE [Concomitant]
     Dosage: DOSE: 3 DD 10 MG
     Route: 042
     Dates: start: 20130815
  5. COLECALCIFEROL [Concomitant]
     Dosage: FORM: DRINK?DOSE: 1 PER 2 WEEK 2 ML
     Route: 048
     Dates: start: 20130819
  6. PYRIDOXINE HYDROCHLORIDE [Concomitant]
     Dosage: DOSE: 1 DD 1
     Route: 048
     Dates: start: 20130812
  7. MAGNESIUM SULFATE [Concomitant]
     Route: 042
     Dates: start: 20130819
  8. HEPARIN [Concomitant]
     Route: 042
     Dates: start: 20130812
  9. ACETYLSALICYLIC ACID [Concomitant]
     Dosage: DOSE: 1 DD 1
     Route: 048
     Dates: start: 20130812
  10. FOLIC ACID [Concomitant]
     Dosage: FREQUENCY: 1 DD1
     Route: 048
     Dates: start: 20130819
  11. SOLUTIONS FOR PARENTERAL NUTRITION [Concomitant]
     Dosage: FORM: EMULSION
     Route: 042
     Dates: start: 20130819
  12. AMIODARONE HYDROCHLORIDE [Concomitant]
     Route: 042
     Dates: start: 20130812
  13. NOREPINEPHRINE [Concomitant]
     Route: 042
     Dates: start: 20130812
  14. CRESTOR [Concomitant]
     Dosage: DOSE: 1 DD 1
     Route: 048
     Dates: start: 20130815
  15. ACICLOVIR [Concomitant]
     Dosage: DOSE: 6 DD
     Route: 003
     Dates: start: 20130819
  16. HYDROCORTISON [Concomitant]
     Dosage: DOSE: 3 DD 25 MG
     Route: 042
     Dates: start: 20130819
  17. ERYTHROMYCIN [Concomitant]
     Dosage: ROUTE: PARENTRAL?DOSE: 4 DD 500 MG
     Dates: start: 20130815
  18. VANCOMYCIN [Concomitant]
     Dosage: DOSE: 1 DD 750 MG
     Route: 042
     Dates: start: 20130819
  19. ETHAMBUTOL [Concomitant]
     Route: 048
     Dates: start: 20130820
  20. FENTANYL [Concomitant]
     Route: 042
     Dates: start: 20130814
  21. PARACETAMOL [Concomitant]
     Dosage: DOSE: 4 DD 100 MG
     Route: 042
     Dates: start: 20130815
  22. PREGABALIN [Concomitant]
     Dosage: DOSE: 1 DD 1
     Route: 048
     Dates: start: 20130814
  23. HALOPERIDOL [Concomitant]
     Dosage: DOSE: 3 DD 1 MG
     Route: 042
     Dates: start: 20130820
  24. IPRATROPIUM [Concomitant]
     Dosage: ROUTE: INHALATION (RESPIRATORY)?DOSE: 4 DD 2 ML
     Dates: start: 20130819

REACTIONS (1)
  - Administration related reaction [Fatal]
